FAERS Safety Report 8839818 (Version 1)
Quarter: 2012Q4

REPORT INFORMATION
  Report Type: 
  Country: US (occurrence: US)
  Receive Date: 20121015
  Receipt Date: 20121015
  Transmission Date: 20130627
  Serious: Yes (Other)
  Sender: FDA-Public Use
  Company Number: US-BRISTOL-MYERS SQUIBB COMPANY-16589988

PATIENT
  Age: 67 Year
  Sex: Female
  Weight: 82 kg

DRUGS (10)
  1. KENALOG-40 INJ [Suspect]
     Indication: CARPAL TUNNEL SYNDROME
     Dosage: 1df 2 inj.1st dose 40mg+2nd 80mg. 3 shots in 7 days
Route of Admin:Intrabursal
     Dates: start: 201202
  2. KENALOG-40 INJ [Suspect]
     Indication: TRIGGER FINGER
     Dosage: 1df 2 inj.1st dose 40mg+2nd 80mg. 3 shots in 7 days
Route of Admin:Intrabursal
     Dates: start: 201202
  3. KENALOG-40 INJ [Suspect]
     Indication: BURSITIS
     Dosage: 1df 2 inj.1st dose 40mg+2nd 80mg. 3 shots in 7 days
Route of Admin:Intrabursal
     Dates: start: 201202
  4. LIDOCAINE [Suspect]
     Dosage: 1 dosage form: 40 (units not specified).
  5. ASPIRIN [Concomitant]
     Dosage: Tabs
  6. FOLIC ACID [Concomitant]
  7. POTASSIUM [Concomitant]
  8. SPIRONOLACTONE [Concomitant]
  9. TIAZAC [Concomitant]
     Dosage: CP24
  10. VYTORIN [Concomitant]
     Dosage: 1 df: 10-10 mg tabs

REACTIONS (4)
  - Dizziness [Unknown]
  - Hyperhidrosis [Recovered/Resolved]
  - Pain [Unknown]
  - Injection site injury [Unknown]
